FAERS Safety Report 4540735-3 (Version None)
Quarter: 2004Q4

REPORT INFORMATION
  Report Type: 
  Country: None (occurrence: None)
  Receive Date: 20041222
  Receipt Date: 20041201
  Transmission Date: 20050328
  Serious: Yes (Congenital Anomaly)
  Sender: FDA-Public Use
  Company Number: GBS041216073

PATIENT
  Age: 0 Year
  Sex: Female
  Weight: 3 kg

DRUGS (4)
  1. FLUOXETINE [Suspect]
  2. SALMETEROL [Concomitant]
  3. ALBUTEROL [Concomitant]
  4. PRENISOLONE [Concomitant]

REACTIONS (2)
  - CONGENITAL EYE DISORDER [None]
  - DRUG EXPOSURE DURING PREGNANCY [None]
